FAERS Safety Report 18221698 (Version 6)
Quarter: 2021Q2

REPORT INFORMATION
  Report Type: Spontaneous
  Country: US (occurrence: US)
  Receive Date: 20200902
  Receipt Date: 20210601
  Transmission Date: 20210717
  Serious: Yes (Hospitalization, Other)
  Sender: FDA-Public Use
  Company Number: US-DECIPHERA PHARMACEUTICALS LLC-2020-US-000290

PATIENT
  Sex: Female
  Weight: 45.35 kg

DRUGS (5)
  1. QINLOCK [Suspect]
     Active Substance: RIPRETINIB
     Dosage: 2 DOSAGE FORM, QD
     Route: 048
  2. QINLOCK [Suspect]
     Active Substance: RIPRETINIB
     Dosage: 3 DOSAGE FORM, QD
     Route: 048
  3. QINLOCK [Suspect]
     Active Substance: RIPRETINIB
     Dosage: 150 MILLIGRAM, QD
     Route: 048
  4. QINLOCK [Suspect]
     Active Substance: RIPRETINIB
     Indication: SMALL INTESTINE CARCINOMA
     Dosage: 150 MILLIGRAM, QD
     Route: 048
     Dates: start: 20200619
  5. QINLOCK [Suspect]
     Active Substance: RIPRETINIB
     Indication: GASTROINTESTINAL STROMAL TUMOUR
     Dosage: 150 MILLIGRAM, QD
     Route: 048

REACTIONS (10)
  - Surgery [Unknown]
  - Paraesthesia [Unknown]
  - Product dose omission in error [Unknown]
  - Rash [Recovered/Resolved]
  - Muscle tightness [Not Recovered/Not Resolved]
  - Pain in extremity [Not Recovered/Not Resolved]
  - Pruritus [Unknown]
  - Alopecia [Not Recovered/Not Resolved]
  - Constipation [Unknown]
  - Medical procedure [Unknown]
